FAERS Safety Report 12305878 (Version 1)
Quarter: 2016Q2

REPORT INFORMATION
  Report Type: Spontaneous
  Country: SE (occurrence: SE)
  Receive Date: 20160426
  Receipt Date: 20160426
  Transmission Date: 20160815
  Serious: Yes (Other)
  Sender: FDA-Public Use
  Company Number: SE-ABBVIE-16P-150-1613843-00

PATIENT
  Age: 7 Year
  Sex: Female

DRUGS (2)
  1. ERGENYL RETARD [Suspect]
     Active Substance: VALPROIC ACID
     Indication: EPILEPSY
     Route: 065
     Dates: start: 20160322
  2. ERGENYL RETARD [Suspect]
     Active Substance: VALPROIC ACID
     Route: 065
     Dates: start: 201604

REACTIONS (3)
  - Tremor [Unknown]
  - Decreased appetite [Unknown]
  - Alopecia [Unknown]

NARRATIVE: CASE EVENT DATE: 201603
